FAERS Safety Report 8012621-8 (Version None)
Quarter: 2011Q4

REPORT INFORMATION
  Report Type: 
  Country: None (occurrence: None)
  Receive Date: 20111229
  Receipt Date: 20111103
  Transmission Date: 20120403
  Serious: Yes (Other)
  Sender: FDA-Public Use
  Company Number: NZ-B.I. PHARMACEUTICALS,INC./RIDGEFIELD-2011-AU-00780AU

PATIENT
  Sex: Female
  Weight: 55 kg

DRUGS (7)
  1. NORTRIPTYLINE HCL [Concomitant]
     Dosage: 20 MG
     Dates: start: 20110712
  2. PRADAXA [Suspect]
     Indication: SUPRAVENTRICULAR TACHYCARDIA
  3. OMEPRAZOLE [Concomitant]
     Dosage: 20 MG
     Dates: start: 20090205
  4. CHOLECALCIFEROL [Concomitant]
     Dosage: 1.25 MONTHLY
     Dates: start: 20060308
  5. SYMBICORT [Concomitant]
     Dosage: 200/6 BD
     Dates: start: 20020617
  6. AMIODARONE [Concomitant]
     Dosage: 200 MG TDS FOR 3 DAYS THEN 1 DAILY
  7. PRADAXA [Suspect]
     Indication: ATRIAL FLUTTER
     Dosage: 220 MG
     Dates: start: 20110701, end: 20110704

REACTIONS (4)
  - RECTAL HAEMORRHAGE [None]
  - LARGE INTESTINAL HAEMORRHAGE [None]
  - COLON CANCER [None]
  - MELAENA [None]
